FAERS Safety Report 7018343-4 (Version None)
Quarter: 2010Q3

REPORT INFORMATION
  Report Type: 
  Country: None (occurrence: None)
  Receive Date: 20100924
  Receipt Date: 20100916
  Transmission Date: 20110219
  Serious: Yes (Death, Hospitalization, Other)
  Sender: FDA-Public Use
  Company Number: KV201000218

PATIENT
  Age: 26 Year
  Sex: Male
  Weight: 105.2 kg

DRUGS (6)
  1. BUSPIRONE HYDROCHLORIDE [Suspect]
     Indication: PRODUCT USED FOR UNKNOWN INDICATION
     Dosage: ORAL
     Route: 048
     Dates: start: 20080506, end: 20081126
  2. TYLENOL W/ CODEINE [Concomitant]
  3. DIAZEPAM [Concomitant]
  4. VICODIN [Concomitant]
  5. PENICILLIN-VK [Concomitant]
  6. CLINDAMYCIN HCL [Concomitant]

REACTIONS (30)
  - ABDOMINAL PAIN [None]
  - ACUTE MYOCARDIAL INFARCTION [None]
  - ATRIAL FIBRILLATION [None]
  - ATRIOVENTRICULAR BLOCK [None]
  - BACK PAIN [None]
  - BRADYCARDIA [None]
  - BRAIN OEDEMA [None]
  - CARDIAC ARREST [None]
  - CARDIOGENIC SHOCK [None]
  - CARDIOMEGALY [None]
  - DIABETIC KETOACIDOSIS [None]
  - DILATATION VENTRICULAR [None]
  - DYSPNOEA [None]
  - ELECTROCARDIOGRAM ST SEGMENT ELEVATION [None]
  - HEPATOMEGALY [None]
  - HYPERCHOLESTEROLAEMIA [None]
  - HYPERTRIGLYCERIDAEMIA [None]
  - HYPONATRAEMIA [None]
  - HYPOTENSION [None]
  - LEFT VENTRICULAR HYPERTROPHY [None]
  - MALAISE [None]
  - NO THERAPEUTIC RESPONSE [None]
  - PAIN [None]
  - PALLOR [None]
  - POLYDIPSIA [None]
  - POLYURIA [None]
  - RESPIRATORY DISTRESS [None]
  - SPLENOMEGALY [None]
  - UNRESPONSIVE TO STIMULI [None]
  - VENTRICULAR FIBRILLATION [None]
